FAERS Safety Report 9961244 (Version 2)
Quarter: 2014Q2

REPORT INFORMATION
  Report Type: Spontaneous
  Country: US (occurrence: US)
  Receive Date: 20140305
  Receipt Date: 20140606
  Transmission Date: 20141212
  Serious: Yes (Other)
  Sender: FDA-Public Use
  Company Number: US-ENDO PHARMACEUTICALS INC.-SOTA20140002

PATIENT
  Sex: Female

DRUGS (2)
  1. SOTALOL HYDROCHLORIDE TABLETS 80MG [Suspect]
     Indication: PRODUCT USED FOR UNKNOWN INDICATION
     Route: 048
     Dates: start: 2012
  2. SOTALOL HYDROCHLORIDE TABLETS 80MG [Suspect]
     Dosage: 120 MG
     Route: 048
     Dates: start: 2012

REACTIONS (3)
  - Incorrect dose administered [Unknown]
  - Atrial fibrillation [Unknown]
  - Memory impairment [Unknown]
